FAERS Safety Report 13695388 (Version 1)
Quarter: 2017Q2

REPORT INFORMATION
  Report Type: Spontaneous
  Country: US (occurrence: US)
  Receive Date: 20170627
  Receipt Date: 20170627
  Transmission Date: 20170830
  Serious: No
  Sender: FDA-Public Use
  Company Number: US-ALLERGAN-1666510US

PATIENT
  Age: 36 Year
  Sex: Female

DRUGS (1)
  1. CRINONE [Suspect]
     Active Substance: PROGESTERONE
     Indication: HORMONE THERAPY
     Dosage: UNK
     Route: 067
     Dates: start: 20160811, end: 20160815

REACTIONS (1)
  - Vaginal discharge [Unknown]

NARRATIVE: CASE EVENT DATE: 20160815
